FAERS Safety Report 9812588 (Version 2)
Quarter: 2014Q1

REPORT INFORMATION
  Report Type: Spontaneous
  Country: US (occurrence: US)
  Receive Date: 20140113
  Receipt Date: 20140116
  Transmission Date: 20141002
  Serious: Yes (Death)
  Sender: FDA-Public Use
  Company Number: US-MERCK-1401USA003862

PATIENT
  Sex: Male

DRUGS (1)
  1. SYLATRON [Suspect]
     Dosage: UNK

REACTIONS (1)
  - Death [Fatal]
